FAERS Safety Report 7228143-8 (Version None)
Quarter: 2011Q1

REPORT INFORMATION
  Report Type: 
  Country: None (occurrence: None)
  Receive Date: 20110106
  Receipt Date: 20101223
  Transmission Date: 20110831
  Serious: Yes (Death)
  Sender: FDA-Public Use
  Company Number: AE 2010-442

PATIENT
  Age: 39 Year
  Sex: Male

DRUGS (3)
  1. PRIALT [Suspect]
     Dosage: 0.06 UG/HR INTRATHECALLY
     Route: 037
     Dates: start: 20101211, end: 20101218
  2. FENTANYL [Suspect]
  3. LIORESAL [Suspect]

REACTIONS (1)
  - PULMONARY EMBOLISM [None]
